FAERS Safety Report 23575750 (Version 1)
Quarter: 2024Q1

REPORT INFORMATION
  Report Type: Report from Study
  Country: CO (occurrence: CO)
  Receive Date: 20240228
  Receipt Date: 20240228
  Transmission Date: 20240409
  Serious: Yes (Hospitalization)
  Sender: FDA-Public Use
  Company Number: CO-ASTELLAS-2024US006201

PATIENT
  Age: 24 Year
  Sex: Male
  Weight: 52 kg

DRUGS (1)
  1. TACROLIMUS [Suspect]
     Active Substance: TACROLIMUS
     Indication: Renal transplant
     Dosage: 0.5 MG, ONCE DAILY
     Route: 048
     Dates: start: 20230621

REACTIONS (3)
  - Malaise [Unknown]
  - Headache [Unknown]
  - Chest pain [Unknown]
